FAERS Safety Report 8614986-2 (Version None)
Quarter: 2012Q3

REPORT INFORMATION
  Report Type: 
  Country: None (occurrence: None)
  Receive Date: 20120815
  Receipt Date: 20120815
  Transmission Date: 20120928
  Serious: No
  Sender: FDA-Public Use
  Company Number: None

PATIENT
  Sex: Female

DRUGS (1)
  1. SERTRALINE HYDROCHLORIDE [Suspect]
     Dosage: 100 MG DAILY PO
     Route: 048
     Dates: start: 20090101, end: 20100101

REACTIONS (3)
  - TREMOR [None]
  - PRODUCT SUBSTITUTION ISSUE [None]
  - ANXIETY [None]
